FAERS Safety Report 5362348-6 (Version None)
Quarter: 2007Q2

REPORT INFORMATION
  Report Type: 
  Country: None (occurrence: None)
  Receive Date: 20070619
  Receipt Date: 20070612
  Transmission Date: 20071010
  Serious: Yes (Hospitalization)
  Sender: FDA-Public Use
  Company Number: US-ELI_LILLY_AND_COMPANY-US200706002853

PATIENT
  Age: 72 Year
  Sex: Female
  Weight: 77.097 kg

DRUGS (8)
  1. BYETTA [Suspect]
     Indication: DIABETES MELLITUS NON-INSULIN-DEPENDENT
     Dosage: 5 UG, 2/D
     Route: 058
     Dates: start: 20060701, end: 20060801
  2. BYETTA [Suspect]
     Dosage: 5 UG, 2/D
     Route: 058
     Dates: start: 20061001, end: 20070301
  3. BYETTA [Suspect]
     Dosage: 5 UG, 2/D
     Route: 058
     Dates: start: 20070501
  4. PREVACID [Concomitant]
     Indication: ABDOMINAL DISCOMFORT
     Dosage: 30 MG, DAILY (1/D)
     Route: 048
     Dates: start: 19990101
  5. ASACOL [Concomitant]
     Indication: COLITIS ULCERATIVE
     Dosage: 1200 MG, 3/D
     Dates: start: 19970101
  6. LIPITOR [Concomitant]
     Indication: BLOOD CHOLESTEROL
     Dosage: 40 MG, DAILY (1/D)
     Route: 048
  7. PRANDIN /USA/ [Concomitant]
     Indication: DIABETES MELLITUS NON-INSULIN-DEPENDENT
     Dosage: 2 MG, 3/D
     Route: 048
     Dates: start: 20061001
  8. CARTIA XT [Concomitant]
     Indication: HYPERTENSION
     Dosage: 180 MG, DAILY (1/D)
     Route: 048

REACTIONS (14)
  - ASTHENIA [None]
  - CHOLECYSTECTOMY [None]
  - DEHYDRATION [None]
  - GAIT DISTURBANCE [None]
  - MALAISE [None]
  - MIGRAINE [None]
  - NAUSEA [None]
  - PNEUMONIA [None]
  - PYREXIA [None]
  - RENAL FAILURE [None]
  - SEASONAL ALLERGY [None]
  - SEPSIS [None]
  - VOMITING [None]
  - WEIGHT DECREASED [None]
